FAERS Safety Report 17453605 (Version 1)
Quarter: 2020Q1

REPORT INFORMATION
  Report Type: Spontaneous
  Country: US (occurrence: US)
  Receive Date: 20200224
  Receipt Date: 20200224
  Transmission Date: 20200409
  Serious: Yes (Hospitalization)
  Sender: FDA-Public Use
  Company Number: US-ELI_LILLY_AND_COMPANY-US202002006043

PATIENT
  Sex: Female

DRUGS (1)
  1. HUMALOG [Suspect]
     Active Substance: INSULIN LISPRO
     Indication: TYPE 1 DIABETES MELLITUS
     Dosage: UNK, UNKNOWN (VIA PUMP)
     Route: 058

REACTIONS (3)
  - Liver disorder [Unknown]
  - Pancreatic carcinoma [Recovered/Resolved]
  - Liver sarcoidosis [Unknown]

NARRATIVE: CASE EVENT DATE: 2000
